FAERS Safety Report 4939859-8 (Version None)
Quarter: 2006Q1

REPORT INFORMATION
  Report Type: 
  Country: None (occurrence: None)
  Receive Date: 20060307
  Receipt Date: 20060222
  Transmission Date: 20060701
  Serious: Yes (Hospitalization)
  Sender: FDA-Public Use
  Company Number: 2006026617

PATIENT
  Age: 44 Year
  Sex: Male

DRUGS (2)
  1. SULFASALAZINE [Suspect]
     Indication: COLITIS ULCERATIVE
     Dosage: 2 GRAM (1 GRAM, 2 IN 1 D), ORAL
     Route: 048
     Dates: start: 20060131, end: 20060207
  2. PREDFOAM (PREDNISOLONE SODIUM SULFOBENZOATE) [Concomitant]

REACTIONS (5)
  - HEADACHE [None]
  - PYREXIA [None]
  - RASH PRURITIC [None]
  - SKIN WARM [None]
  - WHEEZING [None]
